FAERS Safety Report 23533741 (Version 1)
Quarter: 2024Q1

REPORT INFORMATION
  Report Type: Spontaneous
  Country: US (occurrence: US)
  Receive Date: 20240216
  Receipt Date: 20240216
  Transmission Date: 20240410
  Serious: No
  Sender: FDA-Public Use
  Company Number: US-PFIZER INC-202400038453

PATIENT
  Age: 71 Year
  Sex: Female

DRUGS (16)
  1. PAXLOVID [Suspect]
     Active Substance: NIRMATRELVIR\RITONAVIR
     Indication: COVID-19 treatment
     Dosage: UNK
     Dates: start: 20240202, end: 20240206
  2. CLOPIDOGREL DR REDDY^S [Concomitant]
     Dosage: UNK
     Dates: start: 20211210
  3. Biocon Atorvastatin [Concomitant]
     Dosage: UNK
     Dates: start: 20240202
  4. Major Aspirin EC [Concomitant]
     Dosage: UNK
     Dates: start: 20211210
  5. Breckenrid Duloxetine [Concomitant]
  6. Leading Furosemide [Concomitant]
     Dosage: UNK
  7. Amneal Levothyroxine [Concomitant]
     Dosage: UNK
  8. TWI DILTIAZEM HCL ER [Concomitant]
     Dosage: UNK
  9. Kirkland Acetaminophen [Concomitant]
     Dosage: UNK
     Dates: start: 20231113
  10. Kirkland Vitamin C [Concomitant]
     Dosage: UNK
  11. Kirkland Loratadine [Concomitant]
     Dosage: UNK
  12. CORICIDIN [ACETYLSALICYLIC ACID;CAFFEINE;CHLORPHENAMINE MALEATE] [Concomitant]
     Dosage: UNK
     Dates: start: 20240201, end: 20240202
  13. Horbaach Hair, Skin + Nails [Concomitant]
     Dosage: UNK
  14. Kirkland VITAMIN D3 [Concomitant]
     Dosage: UNK
  15. OZEMPIC [Concomitant]
     Active Substance: SEMAGLUTIDE
     Dosage: UNK
  16. ENTYVIO [Concomitant]
     Active Substance: VEDOLIZUMAB
     Dosage: UNK

REACTIONS (7)
  - Rhinorrhoea [Not Recovered/Not Resolved]
  - Sneezing [Not Recovered/Not Resolved]
  - Lymphadenopathy [Not Recovered/Not Resolved]
  - Headache [Not Recovered/Not Resolved]
  - Chills [Not Recovered/Not Resolved]
  - Asthenia [Not Recovered/Not Resolved]
  - Discomfort [Not Recovered/Not Resolved]

NARRATIVE: CASE EVENT DATE: 20240211
